FAERS Safety Report 15103023 (Version 4)
Quarter: 2019Q2

REPORT INFORMATION
  Report Type: Report from Study
  Country: NL (occurrence: NL)
  Receive Date: 20180703
  Receipt Date: 20190531
  Transmission Date: 20190711
  Serious: Yes (Other)
  Sender: FDA-Public Use
  Company Number: NL-CELGENEUS-NLD-20180609821

PATIENT
  Age: 76 Year
  Sex: Female

DRUGS (3)
  1. BENDAMUSTINE [Suspect]
     Active Substance: BENDAMUSTINE
     Indication: B-CELL LYMPHOMA
     Dosage: 164 MILLIGRAM
     Route: 065
     Dates: start: 20180214, end: 20180515
  2. RITUXIMAB. [Suspect]
     Active Substance: RITUXIMAB
     Indication: B-CELL LYMPHOMA
     Dosage: 682 MILLIGRAM
     Route: 041
     Dates: start: 20180214, end: 20180515
  3. REVLIMID [Suspect]
     Active Substance: LENALIDOMIDE
     Indication: B-CELL LYMPHOMA
     Dosage: 20 MILLIGRAM
     Route: 048
     Dates: start: 20180216, end: 20180529

REACTIONS (2)
  - Tinnitus [Recovered/Resolved]
  - Head titubation [Recovered/Resolved]

NARRATIVE: CASE EVENT DATE: 20180530
